FAERS Safety Report 8984368 (Version 2)
Quarter: 2013Q1

REPORT INFORMATION
  Report Type: Report from Study
  Country: CA (occurrence: CA)
  Receive Date: 20121226
  Receipt Date: 20130128
  Transmission Date: 20140127
  Serious: Yes (Death, Hospitalization)
  Sender: FDA-Public Use
  Company Number: CA-JNJFOC-20121209582

PATIENT
  Age: 71 Year
  Sex: Female

DRUGS (1)
  1. REMICADE [Suspect]
     Indication: CROHN^S DISEASE
     Dosage: 16 INFUSION TILL DATE
     Route: 042
     Dates: start: 20101220, end: 20121022

REACTIONS (1)
  - Cerebrovascular accident [Fatal]
